FAERS Safety Report 19006693 (Version 2)
Quarter: 2021Q1

REPORT INFORMATION
  Report Type: Spontaneous
  Country: BE (occurrence: BE)
  Receive Date: 20210315
  Receipt Date: 20210326
  Transmission Date: 20210420
  Serious: Yes (Death)
  Sender: FDA-Public Use
  Company Number: BE-ABBVIE-21K-013-3815438-00

PATIENT
  Age: 80 Year
  Sex: Female

DRUGS (3)
  1. RITUXIMAB. [Suspect]
     Active Substance: RITUXIMAB
     Indication: CHRONIC LYMPHOCYTIC LEUKAEMIA
     Route: 042
     Dates: start: 20200812, end: 20200812
  2. RITUXIMAB. [Suspect]
     Active Substance: RITUXIMAB
     Indication: PROLYMPHOCYTIC LEUKAEMIA
  3. VENCLYXTO [Suspect]
     Active Substance: VENETOCLAX
     Indication: CHRONIC LYMPHOCYTIC LEUKAEMIA
     Route: 048
     Dates: start: 20200812, end: 20201012

REACTIONS (4)
  - Asthenia [Unknown]
  - Fatigue [Unknown]
  - Chronic lymphocytic leukaemia [Fatal]
  - Prolymphocytic leukaemia [Fatal]

NARRATIVE: CASE EVENT DATE: 20201013
